FAERS Safety Report 8067957-1 (Version None)
Quarter: 2012Q1

REPORT INFORMATION
  Report Type: 
  Country: None (occurrence: None)
  Receive Date: 20120124
  Receipt Date: 20110907
  Transmission Date: 20120608
  Serious: No
  Sender: FDA-Public Use
  Company Number: US-AMGEN-USASP2011045892

PATIENT
  Age: 63 Year
  Sex: Female

DRUGS (7)
  1. VITAMIN D [Concomitant]
     Dosage: 1 IU, QD
  2. CALCIUM [Concomitant]
     Dosage: 1 MG, QD
  3. VITAMIN C                          /00008001/ [Concomitant]
  4. LIPITOR [Concomitant]
     Dosage: UNK
  5. PROLIA [Suspect]
     Indication: OSTEOPOROSIS POSTMENOPAUSAL
     Dosage: 60 MG, Q6MO
     Dates: start: 20101001
  6. MULTIVITAMIN                       /00097801/ [Concomitant]
  7. SYNTHROID [Concomitant]
     Dosage: UNK MUG, UNK

REACTIONS (1)
  - TOOTH FRACTURE [None]
